FAERS Safety Report 5761279-7 (Version None)
Quarter: 2008Q2

REPORT INFORMATION
  Report Type: 
  Country: None (occurrence: None)
  Receive Date: 20080606
  Receipt Date: 20080603
  Transmission Date: 20081010
  Serious: Yes (Other)
  Sender: FDA-Public Use
  Company Number: KP-ASTRAZENECA-2008AP03853

PATIENT
  Age: 77 Year
  Sex: Male

DRUGS (1)
  1. GOSERELIN ACETATE [Suspect]
     Indication: PROSTATE CANCER
     Route: 058
     Dates: start: 19940328

REACTIONS (1)
  - INTERSTITIAL LUNG DISEASE [None]
